FAERS Safety Report 17569239 (Version 1)
Quarter: 2020Q1

REPORT INFORMATION
  Report Type: Spontaneous
  Country: US (occurrence: US)
  Receive Date: 20200322
  Receipt Date: 20200322
  Transmission Date: 20200409
  Serious: No
  Sender: FDA-Public Use
  Company Number: US-TEVA-2020-US-1205257

PATIENT
  Sex: Male

DRUGS (2)
  1. BUPRENORPHINE. [Suspect]
     Active Substance: BUPRENORPHINE
     Dosage: 8 MILLIGRAM DAILY;
     Route: 065
  2. BUPRENORPHINE. [Suspect]
     Active Substance: BUPRENORPHINE
     Dosage: 6 MILLIGRAM DAILY;
     Route: 065

REACTIONS (3)
  - Somnolence [Unknown]
  - Memory impairment [Not Recovered/Not Resolved]
  - Muscle twitching [Not Recovered/Not Resolved]
